FAERS Safety Report 5945804-9 (Version None)
Quarter: 2008Q4

REPORT INFORMATION
  Report Type: 
  Country: None (occurrence: None)
  Receive Date: 20081104
  Receipt Date: 20081028
  Transmission Date: 20090506
  Serious: Yes (Life-Threatening, Hospitalization)
  Sender: FDA-Public Use
  Company Number: 2008SP019056

PATIENT
  Age: 61 Year
  Sex: Female
  Weight: 77 kg

DRUGS (7)
  1. TEMOZOLOMIDE [Suspect]
     Dosage: 140 MG;QD;PO; 130 MG;QD;PO
     Route: 048
     Dates: start: 20080623, end: 20080805
  2. TEMOZOLOMIDE [Suspect]
     Dosage: 140 MG;QD;PO; 130 MG;QD;PO
     Route: 048
     Dates: start: 20080813, end: 20080924
  3. TEMOZOLOMIDE [Suspect]
  4. METOCLOPRAMIDE [Concomitant]
  5. ONDANSETRON [Concomitant]
  6. LACTULOSE [Concomitant]
  7. CIPROFLOXACIN HCL [Concomitant]

REACTIONS (2)
  - PANCYTOPENIA [None]
  - SEPSIS [None]
